FAERS Safety Report 16144349 (Version 1)
Quarter: 2019Q2

REPORT INFORMATION
  Report Type: Report from Study
  Country: JP (occurrence: JP)
  Receive Date: 20190401
  Receipt Date: 20190401
  Transmission Date: 20190711
  Serious: Yes (Other)
  Sender: FDA-Public Use
  Company Number: JP-JNJFOC-20190337208

PATIENT

DRUGS (4)
  1. DARZALEX [Suspect]
     Active Substance: DARATUMUMAB
     Indication: PLASMA CELL MYELOMA
     Route: 041
  2. VELCADE [Suspect]
     Active Substance: BORTEZOMIB
     Indication: PLASMA CELL MYELOMA
     Route: 065
  3. DEXAMETHASONE. [Suspect]
     Active Substance: DEXAMETHASONE
     Indication: PLASMA CELL MYELOMA
     Route: 065
  4. LENALIDOMIDE [Suspect]
     Active Substance: LENALIDOMIDE
     Indication: PLASMA CELL MYELOMA
     Route: 048

REACTIONS (12)
  - Platelet count decreased [Unknown]
  - Diarrhoea [Unknown]
  - Neutrophil count decreased [Unknown]
  - Haematotoxicity [Unknown]
  - Oedema peripheral [Unknown]
  - Fatigue [Unknown]
  - Infusion related reaction [Unknown]
  - Nausea [Unknown]
  - Pyrexia [Unknown]
  - Hyperglycaemia [Unknown]
  - Cardiotoxicity [Unknown]
  - Constipation [Unknown]
